FAERS Safety Report 18658473 (Version 1)
Quarter: 2020Q4

REPORT INFORMATION
  Report Type: Spontaneous
  Country: CN (occurrence: CN)
  Receive Date: 20201224
  Receipt Date: 20201224
  Transmission Date: 20210114
  Serious: Yes (Hospitalization, Other)
  Sender: FDA-Public Use
  Company Number: CN-ALKEM LABORATORIES LIMITED-CN-ALKEM-2020-06397

PATIENT
  Age: 24 Year
  Sex: Male
  Weight: 52.2 kg

DRUGS (10)
  1. TIGECYCLINE. [Interacting]
     Active Substance: TIGECYCLINE
     Indication: ENTEROCOCCAL INFECTION
     Dosage: 200 MILLIGRAM (1 TOTAL)
     Route: 042
     Dates: start: 201811
  2. TIGECYCLINE. [Interacting]
     Active Substance: TIGECYCLINE
     Dosage: 200 MILLIGRAM (EVERY 12 HOUR)
     Route: 042
     Dates: start: 201811, end: 201811
  3. CASPOFUNGIN [Concomitant]
     Active Substance: CASPOFUNGIN
     Indication: INFECTION PROPHYLAXIS
     Dosage: 50 MILLIGRAM, QD
     Route: 065
     Dates: start: 201811
  4. TACROLIMUS. [Interacting]
     Active Substance: TACROLIMUS
     Indication: IMMUNOSUPPRESSANT DRUG THERAPY
     Dosage: 4 MILLIGRAM, QD
     Route: 065
     Dates: start: 201811, end: 2018
  5. TACROLIMUS. [Interacting]
     Active Substance: TACROLIMUS
     Dosage: 0.5 MILLIGRAM, BID
     Route: 048
     Dates: start: 201811, end: 201811
  6. TACROLIMUS. [Interacting]
     Active Substance: TACROLIMUS
     Dosage: UNK
     Route: 048
     Dates: start: 2018, end: 201901
  7. MEROPENEM. [Concomitant]
     Active Substance: MEROPENEM
     Indication: INFECTION PROPHYLAXIS
     Dosage: 1 GRAM, TID
     Route: 065
     Dates: start: 201811
  8. METHYLPREDNISOLONE. [Concomitant]
     Active Substance: METHYLPREDNISOLONE
     Indication: IMMUNOSUPPRESSANT DRUG THERAPY
     Dosage: UNK
     Route: 065
     Dates: start: 201811
  9. MYCOPHENOLATE MOFETIL. [Suspect]
     Active Substance: MYCOPHENOLATE MOFETIL
     Indication: IMMUNOSUPPRESSION
     Dosage: 1440 MILLIGRAM, QD
     Dates: start: 201811, end: 201811
  10. MYCOPHENOLATE MOFETIL. [Suspect]
     Active Substance: MYCOPHENOLATE MOFETIL
     Dosage: UNK
     Dates: start: 201811, end: 201812

REACTIONS (7)
  - Pancreatitis acute [Recovering/Resolving]
  - Parvovirus B19 infection [Not Recovered/Not Resolved]
  - Enterococcal infection [Unknown]
  - Drug interaction [Unknown]
  - Anaemia [Unknown]
  - Immunosuppressant drug level increased [Recovering/Resolving]
  - Cytomegalovirus infection [Recovered/Resolved]

NARRATIVE: CASE EVENT DATE: 201811
